FAERS Safety Report 9940485 (Version 2)
Quarter: 2014Q1

REPORT INFORMATION
  Report Type: Spontaneous
  Country: DE (occurrence: DE)
  Receive Date: 20140303
  Receipt Date: 20140303
  Transmission Date: 20141002
  Serious: Yes (Hospitalization)
  Sender: FDA-Public Use
  Company Number: DE-AMGEN-DEUSP2014008316

PATIENT
  Age: 62 Year
  Sex: Male
  Weight: 115 kg

DRUGS (7)
  1. VECTIBIX [Suspect]
     Indication: COLORECTAL CANCER METASTATIC
     Dosage: 690 MG, Q14D (1H INFUSION)
     Route: 065
     Dates: start: 20140102, end: 20140116
  2. OXALIPLATIN [Concomitant]
     Indication: COLORECTAL CANCER METASTATIC
     Dosage: 170 MG, 2H
     Route: 042
     Dates: start: 20140102, end: 20140120
  3. OXALIPLATIN [Concomitant]
     Indication: METASTASES TO LIVER
  4. 5 FU [Concomitant]
     Indication: COLORECTAL CANCER METASTATIC
     Dosage: 200 MG, 1/2H
     Route: 042
     Dates: start: 20140102, end: 20140120
  5. 5 FU [Concomitant]
     Indication: METASTASES TO LIVER
     Dosage: 120 MG, 24H (BAXTER PUMP)
     Dates: start: 20140102, end: 20140120
  6. FOLINIC ACID [Concomitant]
     Indication: COLORECTAL CANCER METASTATIC
     Dosage: 400 MG, 2H
     Route: 042
     Dates: start: 20140102, end: 20140120
  7. FOLINIC ACID [Concomitant]
     Indication: METASTASES TO LIVER

REACTIONS (6)
  - Rash pustular [Recovering/Resolving]
  - Rash erythematous [Recovering/Resolving]
  - Rash [Recovering/Resolving]
  - Skin fissures [Recovering/Resolving]
  - Skin lesion [Recovering/Resolving]
  - Mucosal inflammation [Recovered/Resolved]
